FAERS Safety Report 7986688-7 (Version None)
Quarter: 2011Q4

REPORT INFORMATION
  Report Type: 
  Country: None (occurrence: None)
  Receive Date: 20111216
  Receipt Date: 20110922
  Transmission Date: 20120403
  Serious: Yes (Other)
  Sender: FDA-Public Use
  Company Number: US-BRISTOL-MYERS SQUIBB COMPANY-15962616

PATIENT
  Age: 49 Year
  Sex: Male

DRUGS (10)
  1. AMBIEN CR [Concomitant]
  2. ABILIFY [Suspect]
     Indication: SCHIZOAFFECTIVE DISORDER
     Dosage: DOSE INCREASED:15MG 16DEC2008
     Dates: start: 20081202, end: 20090101
  3. SPIRONOLACTONE [Concomitant]
  4. KLONOPIN [Concomitant]
     Dosage: AS NECESSARY
  5. LANOXIN [Concomitant]
  6. LEXAPRO [Suspect]
     Dosage: DOSE REDUCED TO 10 MG
  7. SEROQUEL [Concomitant]
  8. SIMVASTATIN [Concomitant]
  9. CITALOPRAM [Concomitant]
  10. CELEXA [Concomitant]

REACTIONS (5)
  - FALL [None]
  - EXTRAPYRAMIDAL DISORDER [None]
  - DEPRESSION [None]
  - CATATONIA [None]
  - HYPERSENSITIVITY [None]
